FAERS Safety Report 7844082-3 (Version None)
Quarter: 2011Q4

REPORT INFORMATION
  Report Type: 
  Country: None (occurrence: None)
  Receive Date: 20111025
  Receipt Date: 20111018
  Transmission Date: 20120403
  Serious: Yes (Death)
  Sender: FDA-Public Use
  Company Number: TH-CELGENEUS-155-21880-11093346

PATIENT
  Age: 71 Year
  Sex: Male

DRUGS (1)
  1. REVLIMID [Suspect]
     Indication: DIFFUSE LARGE B-CELL LYMPHOMA REFRACTORY
     Dosage: 25 MILLIGRAM
     Route: 048
     Dates: start: 20110903, end: 20110912

REACTIONS (1)
  - DIFFUSE LARGE B-CELL LYMPHOMA [None]
